FAERS Safety Report 16892544 (Version 4)
Quarter: 2020Q1

REPORT INFORMATION
  Report Type: Spontaneous
  Country: US (occurrence: US)
  Receive Date: 20191007
  Receipt Date: 20200207
  Transmission Date: 20200409
  Serious: Yes (Other)
  Sender: FDA-Public Use
  Company Number: US-PFIZER INC-2019428663

PATIENT
  Age: 71 Year
  Sex: Female

DRUGS (1)
  1. XELJANZ XR [Suspect]
     Active Substance: TOFACITINIB CITRATE
     Dosage: 11 MG, UNK
     Dates: start: 201906

REACTIONS (5)
  - Nasopharyngitis [Unknown]
  - Pruritus [Unknown]
  - Pneumonia [Unknown]
  - Asthma [Unknown]
  - Laryngeal pain [Unknown]

NARRATIVE: CASE EVENT DATE: 2019
